FAERS Safety Report 4611464-2 (Version None)
Quarter: 2005Q1

REPORT INFORMATION
  Report Type: 
  Country: None (occurrence: None)
  Receive Date: 20050311
  Receipt Date: 20041115
  Transmission Date: 20050727
  Serious: No
  Sender: FDA-Public Use
  Company Number: 2004-BP-11996BP

PATIENT
  Age: 58 Year
  Sex: Female

DRUGS (9)
  1. SPIRIVA [Suspect]
     Indication: SLEEP APNOEA SYNDROME
     Dosage: 18 MCG (18 MCG, QD), IH
     Route: 055
     Dates: start: 20041102
  2. DIAZIDE (GLICLAZIDE) [Concomitant]
  3. ZOCOR [Concomitant]
  4. ALLOPURINOL [Concomitant]
  5. ACETYLSALICYLIC ACID SRT [Concomitant]
  6. GLUCOSAMINE (GLUCOSAMINE) [Concomitant]
  7. NOVOLIN 85/15 [Concomitant]
  8. COMBIVENT [Concomitant]
  9. PRINIVIL (PRINIVIL) [Concomitant]

REACTIONS (4)
  - DRY EYE [None]
  - DYSPHONIA [None]
  - FLATULENCE [None]
  - PHOTOPSIA [None]
